FAERS Safety Report 21825762 (Version 2)
Quarter: 2023Q1

REPORT INFORMATION
  Report Type: Spontaneous
  Country: US (occurrence: US)
  Receive Date: 20230105
  Receipt Date: 20230131
  Transmission Date: 20230418
  Serious: No
  Sender: FDA-Public Use
  Company Number: US-drreddys-SPO/USA/22/0158739

PATIENT
  Age: 69 Year
  Sex: Female

DRUGS (10)
  1. LENALIDOMIDE [Suspect]
     Active Substance: LENALIDOMIDE
     Indication: Plasma cell myeloma
     Dosage: BY MOUTH EVERY DAY ON DAYS 1-14 THEN 7 DAYS OFF
     Route: 048
     Dates: start: 20221101
  2. PRAVASTATIN TAB 20MG [Concomitant]
     Indication: Product used for unknown indication
  3. METFORMIN HC TB2 500MG [Concomitant]
     Indication: Product used for unknown indication
  4. AMLODIPINE B TAB 10MG [Concomitant]
     Indication: Product used for unknown indication
  5. GABAPENTIN [Concomitant]
     Active Substance: GABAPENTIN
     Indication: Product used for unknown indication
  6. LANTUS SOLOS SOP 100UNIT [Concomitant]
     Indication: Product used for unknown indication
     Dosage: SOLOS SOP 100UNIT
  7. LEVOTHYROXIN TAB 75MCG [Concomitant]
     Indication: Product used for unknown indication
  8. LISINOPRIL-H TAB 20-25MG [Concomitant]
     Indication: Product used for unknown indication
     Dosage: 20-25MG
  9. PERCOCET TAB 5-325MG [Concomitant]
     Indication: Product used for unknown indication
     Dosage: 5-325MG
  10. REVLIMID [Concomitant]
     Active Substance: LENALIDOMIDE
     Indication: Product used for unknown indication

REACTIONS (2)
  - Memory impairment [Not Recovered/Not Resolved]
  - Diarrhoea [Not Recovered/Not Resolved]
